FAERS Safety Report 23785052 (Version 7)
Quarter: 2025Q2

REPORT INFORMATION
  Report Type: Report from Study
  Country: CA (occurrence: CA)
  Receive Date: 20240425
  Receipt Date: 20250625
  Transmission Date: 20250716
  Serious: Yes (Other)
  Sender: TAKEDA
  Company Number: CA-TAKEDA-2024TUS037540

PATIENT
  Age: 63 Year
  Sex: Female

DRUGS (3)
  1. VEDOLIZUMAB [Suspect]
     Active Substance: VEDOLIZUMAB
     Indication: Colitis ulcerative
  2. VEDOLIZUMAB [Suspect]
     Active Substance: VEDOLIZUMAB
     Dosage: 300 MILLIGRAM, Q4WEEKS
     Dates: start: 20240925, end: 20250303
  3. MESALAMINE [Concomitant]
     Active Substance: MESALAMINE
     Dosage: UNK UNK, QD
     Dates: start: 20220902

REACTIONS (6)
  - Metabolic dysfunction-associated steatohepatitis [Unknown]
  - Cytomegalovirus colitis [Unknown]
  - Drug ineffective [Not Recovered/Not Resolved]
  - Chest discomfort [Unknown]
  - Gastrooesophageal reflux disease [Unknown]
  - Off label use [Unknown]

NARRATIVE: CASE EVENT DATE: 20240925
